FAERS Safety Report 19636509 (Version 1)
Quarter: 2021Q3

REPORT INFORMATION
  Report Type: Other
  Country: US (occurrence: US)
  Receive Date: 20210730
  Receipt Date: 20210730
  Transmission Date: 20211014
  Serious: Yes (Hospitalization, Other)
  Sender: FDA-Public Use
  Company Number: US-ACORDA-ACO_169722_2021

PATIENT
  Age: 63 Year
  Sex: Female

DRUGS (25)
  1. TERIFLUNOMIDE. [Suspect]
     Active Substance: TERIFLUNOMIDE
     Indication: MULTIPLE SCLEROSIS
     Dosage: 14 MILLIGRAM, QD
     Route: 048
     Dates: start: 2015
  2. CALCIUM [Concomitant]
     Active Substance: CALCIUM
     Indication: PRODUCT USED FOR UNKNOWN INDICATION
     Dosage: UNK
     Route: 065
  3. CINNAMON OIL [Concomitant]
     Active Substance: CINNAMON OIL
     Indication: PRODUCT USED FOR UNKNOWN INDICATION
     Dosage: UNK
     Route: 065
  4. COENZYME Q10 [Concomitant]
     Active Substance: DIETARY SUPPLEMENT\UBIDECARENONE
     Indication: PRODUCT USED FOR UNKNOWN INDICATION
     Dosage: UNK
     Route: 065
  5. TERIFLUNOMIDE. [Suspect]
     Active Substance: TERIFLUNOMIDE
     Dosage: 7 MILLIGRAM, QD
     Route: 048
     Dates: start: 20161228, end: 2016
  6. ZONISAMIDE. [Suspect]
     Active Substance: ZONISAMIDE
     Indication: PRODUCT USED FOR UNKNOWN INDICATION
     Dosage: 300 MILLIGRAM
     Route: 065
  7. PREDNISONE. [Suspect]
     Active Substance: PREDNISONE
     Indication: PRODUCT USED FOR UNKNOWN INDICATION
     Dosage: UNK
     Route: 065
     Dates: start: 201806
  8. VACCINIUM MACROCARPON [Concomitant]
     Active Substance: CRANBERRY
     Indication: PRODUCT USED FOR UNKNOWN INDICATION
     Dosage: UNK
     Route: 065
  9. VITAMIN D3 [Concomitant]
     Active Substance: CHOLECALCIFEROL
     Indication: PRODUCT USED FOR UNKNOWN INDICATION
     Dosage: UNK
     Route: 065
  10. BUSPIRONE [Concomitant]
     Active Substance: BUSPIRONE HYDROCHLORIDE
     Indication: PRODUCT USED FOR UNKNOWN INDICATION
     Dosage: UNK
     Route: 065
  11. OMEPRAZOLE. [Concomitant]
     Active Substance: OMEPRAZOLE
     Indication: PRODUCT USED FOR UNKNOWN INDICATION
     Dosage: UNK
     Route: 065
  12. TERIFLUNOMIDE. [Suspect]
     Active Substance: TERIFLUNOMIDE
     Dosage: 14 MILLIGRAM, QD
     Route: 048
     Dates: start: 20200417
  13. TERIFLUNOMIDE. [Suspect]
     Active Substance: TERIFLUNOMIDE
     Dosage: 14 MILLIGRAM, QD
     Route: 048
     Dates: start: 201608, end: 2016
  14. TERIFLUNOMIDE. [Suspect]
     Active Substance: TERIFLUNOMIDE
     Dosage: 14 MILLIGRAM, QD
     Route: 048
  15. MELATONIN [Concomitant]
     Active Substance: MELATONIN
     Indication: PRODUCT USED FOR UNKNOWN INDICATION
     Dosage: UNK
     Route: 065
  16. AMPYRA [Suspect]
     Active Substance: DALFAMPRIDINE
     Indication: BALANCE DISORDER
     Dosage: UNK, BID
     Route: 048
     Dates: start: 2017
  17. TERIFLUNOMIDE. [Suspect]
     Active Substance: TERIFLUNOMIDE
     Dosage: 14 MILLIGRAM, QD
     Route: 048
     Dates: start: 201810, end: 20200201
  18. VICODIN [Concomitant]
     Active Substance: ACETAMINOPHEN\HYDROCODONE BITARTRATE
     Indication: PRODUCT USED FOR UNKNOWN INDICATION
     Dosage: UNK
     Route: 065
  19. MULTIVITAMINS [VITAMINS NOS] [Concomitant]
     Active Substance: VITAMINS
     Indication: PRODUCT USED FOR UNKNOWN INDICATION
     Dosage: UNK
     Route: 065
  20. TERIFLUNOMIDE. [Suspect]
     Active Substance: TERIFLUNOMIDE
     Dosage: 14 MILLIGRAM, QD
     Route: 048
     Dates: start: 20160923, end: 20170115
  21. TERIFLUNOMIDE. [Suspect]
     Active Substance: TERIFLUNOMIDE
     Dosage: 14 MILLIGRAM, QD
     Route: 048
     Dates: start: 20170410, end: 201705
  22. ASA [Concomitant]
     Active Substance: ASPIRIN
     Indication: INFLUENZA
     Dosage: UNK
     Route: 065
  23. GABAPENTIN. [Concomitant]
     Active Substance: GABAPENTIN
     Indication: RESTLESS LEGS SYNDROME
     Dosage: UNK
     Route: 065
  24. HYDROCHLOROTHIAZIDE. [Concomitant]
     Active Substance: HYDROCHLOROTHIAZIDE
     Indication: PRODUCT USED FOR UNKNOWN INDICATION
     Dosage: UNK
     Route: 065
  25. VITAMIN D [VITAMIN D NOS] [Concomitant]
     Active Substance: VITAMIN D NOS
     Indication: PRODUCT USED FOR UNKNOWN INDICATION
     Dosage: UNK
     Route: 065

REACTIONS (97)
  - Intervertebral disc disorder [Recovering/Resolving]
  - Thinking abnormal [Unknown]
  - Memory impairment [Unknown]
  - Muscular weakness [Recovered/Resolved]
  - Hypoaesthesia [Unknown]
  - Tendon sheath incision [Unknown]
  - Dehydration [Recovered/Resolved]
  - Hemiparesis [Unknown]
  - Tremor [Unknown]
  - Peripheral swelling [Unknown]
  - Renal cyst [Not Recovered/Not Resolved]
  - Post-traumatic neck syndrome [Recovering/Resolving]
  - Limb injury [Not Recovered/Not Resolved]
  - Blood uric acid increased [Unknown]
  - Chest pain [Recovered/Resolved]
  - Pain [Recovering/Resolving]
  - Carpal tunnel decompression [Unknown]
  - Motor dysfunction [Not Recovered/Not Resolved]
  - Urinary tract infection [Recovered/Resolved]
  - Cerebrovascular accident [Unknown]
  - Diarrhoea [Unknown]
  - Hepatomegaly [Not Recovered/Not Resolved]
  - Chills [Recovered/Resolved]
  - Narcolepsy [Unknown]
  - Joint stiffness [Unknown]
  - Trigger finger [Unknown]
  - Hypersomnia [Unknown]
  - Skin discolouration [Not Recovered/Not Resolved]
  - Swelling face [Unknown]
  - Weight decreased [Unknown]
  - Foot deformity [Unknown]
  - Knee arthroplasty [Unknown]
  - Splenomegaly [Not Recovered/Not Resolved]
  - Blood pressure decreased [Not Recovered/Not Resolved]
  - Blood glucose increased [Recovered/Resolved]
  - Cognitive disorder [Not Recovered/Not Resolved]
  - Nerve injury [Not Recovered/Not Resolved]
  - Night sweats [Not Recovered/Not Resolved]
  - Intervertebral disc protrusion [Recovering/Resolving]
  - Head injury [Unknown]
  - Vertigo [Not Recovered/Not Resolved]
  - Hypersensitivity [Unknown]
  - Road traffic accident [Unknown]
  - Dysgraphia [Not Recovered/Not Resolved]
  - Tinnitus [Not Recovered/Not Resolved]
  - Musculoskeletal stiffness [Recovering/Resolving]
  - Skin mass [Not Recovered/Not Resolved]
  - Depression [Unknown]
  - Joint swelling [Not Recovered/Not Resolved]
  - Nerve compression [Recovering/Resolving]
  - Tendonitis [Not Recovered/Not Resolved]
  - Mood swings [Unknown]
  - Urinary incontinence [Not Recovered/Not Resolved]
  - Influenza [Unknown]
  - Hypertension [Unknown]
  - Arthritis [Not Recovered/Not Resolved]
  - Multiple sclerosis [Recovering/Resolving]
  - Foot fracture [Unknown]
  - Blindness unilateral [Unknown]
  - Pain [Unknown]
  - Abnormal behaviour [Unknown]
  - Clumsiness [Unknown]
  - Muscle spasms [Not Recovered/Not Resolved]
  - Incision site complication [Unknown]
  - Crying [Unknown]
  - Gout [Not Recovered/Not Resolved]
  - Hand deformity [Unknown]
  - Dizziness [Not Recovered/Not Resolved]
  - Insomnia [Not Recovered/Not Resolved]
  - Fatigue [Not Recovered/Not Resolved]
  - Suicidal ideation [Unknown]
  - Feeling abnormal [Unknown]
  - Contusion [Unknown]
  - Visual impairment [Not Recovered/Not Resolved]
  - Vomiting [Recovered/Resolved]
  - Balance disorder [Recovered/Resolved]
  - Headache [Recovered/Resolved]
  - Loss of consciousness [Unknown]
  - Fall [Unknown]
  - Arthropathy [Not Recovered/Not Resolved]
  - Aphasia [Not Recovered/Not Resolved]
  - Sciatica [Recovered/Resolved]
  - Arthritis [Not Recovered/Not Resolved]
  - Plantar fasciitis [Not Recovered/Not Resolved]
  - Hiatus hernia [Unknown]
  - Pain in extremity [Not Recovered/Not Resolved]
  - Carpal tunnel syndrome [Recovered/Resolved]
  - Arthralgia [Not Recovered/Not Resolved]
  - Spinal osteoarthritis [Not Recovered/Not Resolved]
  - Off label use [Unknown]
  - Nausea [Recovered/Resolved]
  - Gait disturbance [Unknown]
  - Splenic lesion [Unknown]
  - Fall [Unknown]
  - Magnetic resonance imaging abnormal [Not Recovered/Not Resolved]
  - Condition aggravated [Unknown]
  - Cyst [Unknown]

NARRATIVE: CASE EVENT DATE: 201701
